FAERS Safety Report 9102111 (Version 2)
Quarter: 2013Q4

REPORT INFORMATION
  Report Type: Spontaneous
  Country: US (occurrence: US)
  Receive Date: 20130218
  Receipt Date: 20131121
  Transmission Date: 20140711
  Serious: Yes (Hospitalization)
  Sender: FDA-Public Use
  Company Number: US-BIOGENIDEC-2013BI014249

PATIENT
  Sex: Female

DRUGS (2)
  1. AVONEX [Suspect]
     Indication: MULTIPLE SCLEROSIS
     Route: 030
     Dates: start: 20111214, end: 20121004
  2. AVONEX [Suspect]
     Indication: MULTIPLE SCLEROSIS
     Route: 030
     Dates: start: 20121123

REACTIONS (5)
  - Systemic lupus erythematosus [Not Recovered/Not Resolved]
  - Renal disorder [Not Recovered/Not Resolved]
  - Multiple sclerosis relapse [Unknown]
  - Diabetes mellitus [Not Recovered/Not Resolved]
  - Malaise [Not Recovered/Not Resolved]
